FAERS Safety Report 8608030-0 (Version None)
Quarter: 2012Q3

REPORT INFORMATION
  Report Type: 
  Country: None (occurrence: None)
  Receive Date: 20120821
  Receipt Date: 20120814
  Transmission Date: 20120928
  Serious: Yes (Hospitalization)
  Sender: FDA-Public Use
  Company Number: JP-BAYER-2012-082764

PATIENT
  Sex: Male

DRUGS (1)
  1. NEXAVAR [Suspect]
     Indication: RENAL CELL CARCINOMA
     Dosage: DAILY DOSE 800 MG
     Route: 048
     Dates: start: 20120701, end: 20120801

REACTIONS (1)
  - HEPATIC FUNCTION ABNORMAL [None]
